FAERS Safety Report 6718390-3 (Version None)
Quarter: 2010Q2

REPORT INFORMATION
  Report Type: 
  Country: None (occurrence: None)
  Receive Date: 20100510
  Receipt Date: 20100426
  Transmission Date: 20101027
  Serious: Yes (Hospitalization)
  Sender: FDA-Public Use
  Company Number: TR-MYLANLABS-2010S1007119

PATIENT
  Age: 48 Year
  Sex: Female

DRUGS (2)
  1. CITALOPRAM HYDROBROMIDE [Suspect]
     Indication: DEPRESSION
     Route: 065
  2. ZOLMITRIPTAN [Interacting]
     Indication: MIGRAINE
     Route: 065

REACTIONS (2)
  - DRUG INTERACTION [None]
  - PRINZMETAL ANGINA [None]
